FAERS Safety Report 24948696 (Version 1)
Quarter: 2025Q1

REPORT INFORMATION
  Report Type: Report from Study
  Country: ES (occurrence: ES)
  Receive Date: 20250210
  Receipt Date: 20250210
  Transmission Date: 20250409
  Serious: Yes (Death, Life-Threatening)
  Sender: ACCORD
  Company Number: None

PATIENT
  Age: 68 Year
  Sex: Male

DRUGS (2)
  1. PACLITAXEL [Suspect]
     Active Substance: PACLITAXEL
     Indication: Hypopharyngeal cancer
     Dates: start: 202303, end: 20230911
  2. CETUXIMAB [Suspect]
     Active Substance: CETUXIMAB
     Indication: Hypopharyngeal cancer
     Dates: start: 202303, end: 20230911

REACTIONS (2)
  - Pneumonitis [Fatal]
  - Diarrhoea [Fatal]

NARRATIVE: CASE EVENT DATE: 20230919
